FAERS Safety Report 8363850-5 (Version None)
Quarter: 2012Q2

REPORT INFORMATION
  Report Type: 
  Country: None (occurrence: None)
  Receive Date: 20120516
  Receipt Date: 20120106
  Transmission Date: 20120825
  Serious: No
  Sender: FDA-Public Use
  Company Number: US-ALEXION-A201200033

PATIENT
  Sex: Female
  Weight: 57 kg

DRUGS (17)
  1. RAPAMUNE [Concomitant]
  2. MYFORTIC [Concomitant]
  3. RENVELA [Concomitant]
  4. SOLIRIS [Suspect]
     Indication: HAEMOLYTIC URAEMIC SYNDROME
     Dosage: 900 MG, QW
     Route: 042
     Dates: start: 20111229
  5. ZOFRAN [Concomitant]
  6. MAXALT [Concomitant]
  7. CALCIUM CARBONATE [Concomitant]
  8. PROGRAF [Concomitant]
  9. ZEMPLAR [Concomitant]
  10. PROCRIT [Concomitant]
  11. TRAMADOL HYDROCHLORIDE [Concomitant]
  12. AMBIEN CR [Concomitant]
  13. NORVASC [Concomitant]
  14. ATIVAN [Concomitant]
  15. LASIX [Concomitant]
  16. PREDNISONE [Concomitant]
  17. FLEXERIL [Concomitant]

REACTIONS (6)
  - HAEMOGLOBIN INCREASED [None]
  - FLUID RETENTION [None]
  - FATIGUE [None]
  - PLATELET COUNT ABNORMAL [None]
  - PLATELET COUNT INCREASED [None]
  - RED BLOOD CELL COUNT ABNORMAL [None]
